FAERS Safety Report 10194920 (Version 3)
Quarter: 2014Q2

REPORT INFORMATION
  Report Type: Spontaneous
  Country: US (occurrence: US)
  Receive Date: 20140526
  Receipt Date: 20140626
  Transmission Date: 20141212
  Serious: No
  Sender: FDA-Public Use
  Company Number: US-PFIZER INC-2014140221

PATIENT
  Age: 57 Year
  Sex: Female
  Weight: 71.66 kg

DRUGS (4)
  1. LYRICA [Suspect]
     Indication: FIBROMYALGIA
     Dosage: 75 MG, 2X/DAY
     Route: 048
     Dates: start: 2013, end: 20140610
  2. LYRICA [Suspect]
     Indication: NERVE INJURY
  3. ALPRAZOLAM [Concomitant]
     Indication: ANXIETY
     Dosage: 0.5 MG, 2X/DAY
  4. ALPRAZOLAM [Concomitant]
     Indication: PANIC ATTACK

REACTIONS (4)
  - Food poisoning [Unknown]
  - Pain [Not Recovered/Not Resolved]
  - Paraesthesia [Not Recovered/Not Resolved]
  - Burning sensation [Unknown]
